FAERS Safety Report 5849264-8 (Version None)
Quarter: 2008Q3

REPORT INFORMATION
  Report Type: 
  Country: None (occurrence: None)
  Receive Date: 20080819
  Receipt Date: 20080808
  Transmission Date: 20090109
  Serious: Yes (Hospitalization)
  Sender: FDA-Public Use
  Company Number: FR-NOVOPROD-277693

PATIENT
  Age: 2 Year
  Sex: Male

DRUGS (6)
  1. NOVONORM [Suspect]
     Indication: DRUG ABUSE
     Route: 048
     Dates: start: 20080630, end: 20080630
  2. TENORDATE [Suspect]
     Route: 048
     Dates: start: 20080630
  3. BIPRETERAX [Suspect]
     Route: 048
     Dates: start: 20080630
  4. FUROSEMIDE [Suspect]
     Route: 048
     Dates: start: 20080630
  5. GLUCOPHAGE [Suspect]
     Route: 048
     Dates: start: 20080630
  6. IKOREL [Suspect]
     Route: 048
     Dates: start: 20080630

REACTIONS (1)
  - DRUG ABUSE [None]
